FAERS Safety Report 23795101 (Version 2)
Quarter: 2024Q2

REPORT INFORMATION
  Report Type: Other
  Country: US (occurrence: None)
  Receive Date: 20240429
  Receipt Date: 20240503
  Transmission Date: 20240715
  Serious: Yes (Hospitalization)
  Sender: FDA-Public Use
  Company Number: US-ROCHE-2715426

PATIENT
  Age: 55 Year
  Sex: Female
  Weight: 68.1 kg

DRUGS (4)
  1. RITUXAN [Suspect]
     Active Substance: RITUXIMAB
     Indication: Polymyositis
     Dosage: THEN EVERY 6 MONTHS
     Route: 041
     Dates: start: 20171129
  2. RITUXAN [Suspect]
     Active Substance: RITUXIMAB
     Dosage: 500 MG SINGLE-USE VIAL
     Route: 041
     Dates: start: 20231115
  3. METHOTREXATE [Concomitant]
     Active Substance: METHOTREXATE
  4. PLAQUENIL [Concomitant]
     Active Substance: HYDROXYCHLOROQUINE SULFATE

REACTIONS (13)
  - Pneumonia aspiration [Unknown]
  - Blood creatine phosphokinase increased [Unknown]
  - Dysphagia [Unknown]
  - Dysphonia [Unknown]
  - Headache [Unknown]
  - Pyrexia [Unknown]
  - Arthralgia [Unknown]
  - Myalgia [Unknown]
  - Muscle spasms [Unknown]
  - Rash [Unknown]
  - Dyspnoea [Unknown]
  - Hypotension [Unknown]
  - Off label use [Unknown]
